FAERS Safety Report 17165478 (Version 2)
Quarter: 2020Q1

REPORT INFORMATION
  Report Type: Spontaneous
  Country: KR (occurrence: KR)
  Receive Date: 20191217
  Receipt Date: 20200107
  Transmission Date: 20200409
  Serious: Yes (Other)
  Sender: FDA-Public Use
  Company Number: NVSC2019KR070355

PATIENT
  Age: 45 Day
  Sex: Female

DRUGS (2)
  1. OCTREOTIDE. [Suspect]
     Active Substance: OCTREOTIDE
     Indication: CHYLOTHORAX
     Dosage: 0.5 ?G/KG, QH
     Route: 042
  2. OCTREOTIDE. [Suspect]
     Active Substance: OCTREOTIDE
     Dosage: 15 ?G/KG, QH
     Route: 042

REACTIONS (5)
  - Intestinal obstruction [Unknown]
  - Necrotising colitis [Unknown]
  - Ileus [Unknown]
  - Abdominal distension [Unknown]
  - Drug ineffective for unapproved indication [Unknown]
